FAERS Safety Report 17141498 (Version 1)
Quarter: 2019Q4

REPORT INFORMATION
  Report Type: Report from Study
  Country: CN (occurrence: CN)
  Receive Date: 20191211
  Receipt Date: 20191211
  Transmission Date: 20200122
  Serious: Yes (Other)
  Sender: FDA-Public Use
  Company Number: CN-UCBSA-2019053323

PATIENT

DRUGS (2)
  1. LEVETIRACETAM. [Suspect]
     Active Substance: LEVETIRACETAM
     Indication: EPILEPSY
     Dosage: 10 MG/(KG X DAY), ADDED ONCE A WEEK. THE TARGET DOSE CONTROLLED AT 20-60 MG/(KG X DAY) ON THE 3RD TO
  2. SODIUM VALPROATE [Suspect]
     Active Substance: VALPROATE SODIUM
     Indication: EPILEPSY
     Dosage: 10 MG/(KG X DAY), ADDED ONCE A WEEK. THE TARGET DOSE CONTROLLED AT 20-60 MG/(KG X DAY) ON THE 3RD TO

REACTIONS (1)
  - Liver injury [Unknown]
